FAERS Safety Report 7113040-9 (Version None)
Quarter: 2010Q4

REPORT INFORMATION
  Report Type: 
  Country: None (occurrence: None)
  Receive Date: 20101119
  Receipt Date: 20101108
  Transmission Date: 20110411
  Serious: Yes (Other)
  Sender: FDA-Public Use
  Company Number: US-JNJFOC-20101104360

PATIENT
  Sex: Male
  Weight: 35.38 kg

DRUGS (7)
  1. RISPERDAL [Suspect]
     Indication: AUTISM
     Route: 048
  2. RISPERIDONE [Suspect]
     Indication: AUTISM
     Dosage: 0.9MG/SOLUTION/1MG/ML/0.9ML DAILY/ORAL
     Route: 048
  3. RISPERIDONE [Suspect]
     Dosage: 1.0MG/SOLUTION/1MG/ML/1ML DAILY/ORAL
     Route: 048
  4. RISPERIDONE [Suspect]
     Dosage: 0.5MG/SOLUTION/1MG/ML/0.5ML DAILY/ORAL
     Route: 048
  5. RISPERIDONE [Suspect]
     Dosage: 1MG/SOLUTION/1MG/ML/1ML DAILY/ORAL
     Route: 048
  6. METADATE CD [Concomitant]
     Indication: AUTISM
     Route: 048
  7. METADATE CD [Concomitant]
     Indication: ATTENTION DEFICIT/HYPERACTIVITY DISORDER
     Route: 048

REACTIONS (6)
  - AGGRESSION [None]
  - AGITATION [None]
  - BLOOD PROLACTIN INCREASED [None]
  - FEELING ABNORMAL [None]
  - HALLUCINATION, AUDITORY [None]
  - RESTLESSNESS [None]
